FAERS Safety Report 18485434 (Version 1)
Quarter: 2020Q4

REPORT INFORMATION
  Report Type: Spontaneous
  Country: DE (occurrence: DE)
  Receive Date: 20201110
  Receipt Date: 20201110
  Transmission Date: 20210114
  Serious: Yes (Hospitalization, Other)
  Sender: FDA-Public Use
  Company Number: DE-TEVA-2020-DE-1846749

PATIENT
  Age: 85 Year
  Sex: Female

DRUGS (7)
  1. FLUTICASONFUROAT/VILANTEROL [Concomitant]
     Dosage: 1 DOSAGE FORMS DAILY; 200|25 UG, 1-0-0-0
  2. VERAPAMIL [Concomitant]
     Active Substance: VERAPAMIL HYDROCHLORIDE
     Dosage: 240 MILLIGRAM DAILY; 240 MG, 0.5-0-0.5-0
  3. MEMANTINE. [Concomitant]
     Active Substance: MEMANTINE
     Dosage: 20 MILLIGRAM DAILY;  1-0-0-0
  4. VITAMIN B12 DEPOT HEVERT [Concomitant]
     Dosage: .02 MILLIGRAM DAILY; 1-0-0-0
  5. PHENPROCOUMON [Suspect]
     Active Substance: PHENPROCOUMON
     Dosage: 3 MG, BY VALUE
  6. SIMVASTATIN. [Suspect]
     Active Substance: SIMVASTATIN
     Dosage: 20 MILLIGRAM DAILY; 0-0-1-0
  7. RAMIPRIL. [Concomitant]
     Active Substance: RAMIPRIL
     Dosage: 2.5 MILLIGRAM DAILY; 1-0-0-0

REACTIONS (5)
  - Visual impairment [Unknown]
  - Personality change [Unknown]
  - Balance disorder [Unknown]
  - Fall [Unknown]
  - Depressed level of consciousness [Unknown]

NARRATIVE: CASE EVENT DATE: 20200220
